FAERS Safety Report 6905170-9 (Version None)
Quarter: 2010Q3

REPORT INFORMATION
  Report Type: 
  Country: None (occurrence: None)
  Receive Date: 20100804
  Receipt Date: 20091027
  Transmission Date: 20110219
  Serious: No
  Sender: FDA-Public Use
  Company Number: US-PFIZER INC-2009248056

PATIENT
  Sex: Female

DRUGS (6)
  1. LYRICA [Suspect]
     Indication: PAIN
     Dosage: 75 MG, 3X/DAY
     Route: 048
     Dates: start: 20090101
  2. GABAPENTIN [Concomitant]
     Dosage: UNK
  3. HYDROCODONE BITARTRATE [Concomitant]
     Dosage: UNK
  4. IBUPROFEN [Concomitant]
     Dosage: UNK
  5. AMLODIPINE BESILATE [Concomitant]
     Dosage: UNK
  6. LISINOPRIL [Concomitant]
     Dosage: UNK

REACTIONS (5)
  - HYPOKALAEMIA [None]
  - HYPOVITAMINOSIS [None]
  - MAGNESIUM DEFICIENCY [None]
  - TREMOR [None]
  - WEIGHT INCREASED [None]
